FAERS Safety Report 13773391 (Version 1)
Quarter: 2017Q3

REPORT INFORMATION
  Report Type: Spontaneous
  Country: US (occurrence: US)
  Receive Date: 20170720
  Receipt Date: 20170720
  Transmission Date: 20171127
  Serious: No
  Sender: FDA-Public Use
  Company Number: US-RECKITT BENCKISER HEALTHCARE INT LIMITED-RB-80227-2017

PATIENT
  Age: 65 Year
  Sex: Female

DRUGS (1)
  1. MUCINEX DM [Suspect]
     Active Substance: DEXTROMETHORPHAN HYDROBROMIDE\GUAIFENESIN
     Indication: COUGH
     Dosage: 600 MG, BID
     Route: 065
     Dates: start: 20161216, end: 20161218

REACTIONS (8)
  - Condition aggravated [Recovered/Resolved]
  - Feeling abnormal [Unknown]
  - Aphonia [Unknown]
  - Insomnia [Unknown]
  - Pruritus [Unknown]
  - Nasal dryness [Unknown]
  - Drug ineffective [Not Recovered/Not Resolved]
  - Epistaxis [Unknown]
